FAERS Safety Report 9358972 (Version 2)
Quarter: 2013Q3

REPORT INFORMATION
  Report Type: Spontaneous
  Country: FR (occurrence: FR)
  Receive Date: 20130620
  Receipt Date: 20130930
  Transmission Date: 20140515
  Serious: Yes (Other)
  Sender: FDA-Public Use
  Company Number: FR-TEVA-413707ISR

PATIENT
  Sex: Female

DRUGS (1)
  1. FUROSEMIDE TEVA [Suspect]

REACTIONS (3)
  - Asphyxia [Recovered/Resolved]
  - Somnolence [Recovered/Resolved]
  - Somnolence [Recovered/Resolved]
